FAERS Safety Report 6117004-3 (Version None)
Quarter: 2009Q1

REPORT INFORMATION
  Report Type: 
  Country: None (occurrence: None)
  Receive Date: 20090314
  Receipt Date: 20090102
  Transmission Date: 20090719
  Serious: No
  Sender: FDA-Public Use
  Company Number: US-ABBOTT-09P-163-0495674-00

PATIENT
  Sex: Female
  Weight: 95.34 kg

DRUGS (8)
  1. HUMIRA [Suspect]
     Indication: PSORIATIC ARTHROPATHY
     Route: 058
     Dates: start: 20080205, end: 20081101
  2. HYDROCHLOROTHIAZIDE [Concomitant]
     Indication: HYPERTENSION
     Route: 048
  3. PROPYL-THIOURACIL [Concomitant]
     Indication: PHARYNGEAL DISORDER
     Dosage: PT STATED WAS FOR HER THROAT.
     Route: 048
  4. DENAZEPRIL [Concomitant]
     Indication: HYPERTENSION
     Route: 048
  5. ZOCOR [Concomitant]
     Indication: BLOOD CHOLESTEROL INCREASED
     Route: 048
  6. METHOTREXATE [Concomitant]
     Indication: PSORIASIS
     Route: 048
  7. CELEBREX [Concomitant]
     Indication: ARTHRITIS
     Route: 048
  8. AMBIEN [Concomitant]
     Indication: INSOMNIA
     Route: 048

REACTIONS (1)
  - PHARYNGITIS [None]
